FAERS Safety Report 14934557 (Version 1)
Quarter: 2018Q2

REPORT INFORMATION
  Report Type: Spontaneous
  Country: IE (occurrence: IE)
  Receive Date: 20180524
  Receipt Date: 20180524
  Transmission Date: 20180711
  Serious: Yes (Other)
  Sender: FDA-Public Use
  Company Number: IE-PERNIX THERAPEUTICS-IE-2018PER001676

PATIENT
  Age: 14 Year
  Sex: Female

DRUGS (1)
  1. SUMATRIPTAN SUCCINATE, NAPROXEN SODIUM [Suspect]
     Active Substance: NAPROXEN SODIUM\SUMATRIPTAN SUCCINATE
     Indication: PRODUCT USED FOR UNKNOWN INDICATION
     Dosage: UNK

REACTIONS (1)
  - Blood bilirubin increased [Unknown]
